FAERS Safety Report 9438701 (Version 2)
Quarter: 2013Q4

REPORT INFORMATION
  Report Type: Spontaneous
  Country: JP (occurrence: JP)
  Receive Date: 20130802
  Receipt Date: 20131211
  Transmission Date: 20140711
  Serious: Yes (Other)
  Sender: FDA-Public Use
  Company Number: PHHY2013JP077624

PATIENT
  Age: 70 Year
  Sex: Female

DRUGS (3)
  1. NEORAL [Suspect]
     Indication: HAEMOLYTIC ANAEMIA
     Dosage: 150 MG, DAILY IN TWO DIVIDED DOSES
     Route: 048
  2. NEORAL [Suspect]
     Indication: OFF LABEL USE
  3. ADRENAL CORTICAL HORMONE PREPARATIONS [Concomitant]
     Route: 061

REACTIONS (1)
  - Colon cancer [Unknown]
